FAERS Safety Report 12582051 (Version 1)
Quarter: 2016Q3

REPORT INFORMATION
  Report Type: Report from Study
  Country: DE (occurrence: DE)
  Receive Date: 20160722
  Receipt Date: 20160722
  Transmission Date: 20161109
  Serious: Yes (Other)
  Sender: FDA-Public Use
  Company Number: DE-ROCHE-1770274

PATIENT

DRUGS (5)
  1. RIBAVIRIN. [Suspect]
     Active Substance: RIBAVIRIN
     Indication: HEPATITIS C
     Dosage: LEAD-IN PHASE OF 4 WEEKS
     Route: 065
  2. RIBAVIRIN. [Suspect]
     Active Substance: RIBAVIRIN
     Dosage: REDUCED TO 400 MG/DAY OR EVEN 200 MG/DAY, DEPENDING ON THE DEGREE OF CYTOPENIA OR RENAL FUNCTION
     Route: 065
  3. SANDIMMUN OPTORAL [Concomitant]
     Active Substance: CYCLOSPORINE
  4. PEG-INTERFERON ALFA 2A [Suspect]
     Active Substance: PEGINTERFERON ALFA-2A
     Indication: HEPATITIS C
     Route: 065
  5. TELAPREVIR [Suspect]
     Active Substance: TELAPREVIR
     Indication: HEPATITIS C
     Dosage: EITHER TWO DAILY DOSES OF 1125 MG OR THREE DAILY DOSES OF 750 MG, RESPECTIVELY
     Route: 065

REACTIONS (8)
  - Anaemia [Unknown]
  - Clostridium difficile colitis [Unknown]
  - Anal pruritus [Unknown]
  - Urinary tract infection [Unknown]
  - Product quality issue [Unknown]
  - Rash [Unknown]
  - Leukopenia [Unknown]
  - Renal failure [Unknown]
